FAERS Safety Report 8519056-X (Version None)
Quarter: 2012Q3

REPORT INFORMATION
  Report Type: 
  Country: None (occurrence: None)
  Receive Date: 20120718
  Receipt Date: 20120711
  Transmission Date: 20120928
  Serious: Yes (Other)
  Sender: FDA-Public Use
  Company Number: CA-ABBOTT-12P-028-0955442-00

PATIENT
  Sex: Female
  Weight: 84.898 kg

DRUGS (1)
  1. LUPRON DEPOT [Suspect]
     Indication: PROSTATE CANCER
     Dosage: 3 MONTH DEPOT
     Route: 030
     Dates: start: 20040101

REACTIONS (4)
  - URETHRAL OBSTRUCTION [None]
  - SHOCK [None]
  - METASTATIC NEOPLASM [None]
  - WHITE BLOOD CELL COUNT DECREASED [None]
